FAERS Safety Report 24345325 (Version 3)
Quarter: 2025Q2

REPORT INFORMATION
  Report Type: Report from Study
  Country: BR (occurrence: BR)
  Receive Date: 20240920
  Receipt Date: 20250611
  Transmission Date: 20250716
  Serious: Yes (Other)
  Sender: TAKEDA
  Company Number: BR-TAKEDA-2024TUS092383

PATIENT
  Age: 65 Year
  Sex: Female

DRUGS (2)
  1. VEDOLIZUMAB [Suspect]
     Active Substance: VEDOLIZUMAB
     Indication: Colitis ulcerative
  2. VEDOLIZUMAB [Suspect]
     Active Substance: VEDOLIZUMAB

REACTIONS (8)
  - Brain neoplasm [Unknown]
  - Metastasis [Recovered/Resolved with Sequelae]
  - Breast cancer metastatic [Recovering/Resolving]
  - Inappropriate schedule of product administration [Unknown]
  - Product availability issue [Unknown]
  - Illness [Unknown]
  - Limb injury [Recovered/Resolved]
  - Localised infection [Recovering/Resolving]

NARRATIVE: CASE EVENT DATE: 20250510
